FAERS Safety Report 10044054 (Version 1)
Quarter: 2014Q1

REPORT INFORMATION
  Report Type: Spontaneous
  Country: US (occurrence: US)
  Receive Date: 20140328
  Receipt Date: 20140328
  Transmission Date: 20141002
  Serious: No
  Sender: FDA-Public Use
  Company Number: US-MYLANLABS-2013S1022922

PATIENT
  Age: 67 Year
  Sex: Female
  Weight: 68.04 kg

DRUGS (4)
  1. EMSAM (SELEGILINE TRANSDERMAL SYSTEM) [Suspect]
     Indication: DEPRESSION
     Dosage: CHANGES Q.D
     Route: 062
     Dates: start: 20130424
  2. PRILOSEC [Concomitant]
     Indication: GASTROOESOPHAGEAL REFLUX DISEASE
  3. ATIVAN [Concomitant]
     Indication: INSOMNIA
     Route: 048
  4. MULTIVITAMIN [Concomitant]
     Route: 048

REACTIONS (4)
  - Impaired gastric emptying [Not Recovered/Not Resolved]
  - Blood glucose increased [Not Recovered/Not Resolved]
  - Rash generalised [Not Recovered/Not Resolved]
  - Rash pruritic [Not Recovered/Not Resolved]
